FAERS Safety Report 7743496-X (Version None)
Quarter: 2011Q3

REPORT INFORMATION
  Report Type: 
  Country: None (occurrence: None)
  Receive Date: 20110912
  Receipt Date: 20101110
  Transmission Date: 20111222
  Serious: No
  Sender: FDA-Public Use
  Company Number: US-ABBOTT-10P-163-0684757-00

PATIENT
  Sex: Male
  Weight: 32.234 kg

DRUGS (13)
  1. CORZALL [Concomitant]
     Indication: SEASONAL ALLERGY
  2. DIASTAT [Concomitant]
     Indication: CONVULSION
     Route: 054
  3. ALLEGRA [Concomitant]
     Indication: ASTHMA
  4. BACTRIM [Concomitant]
     Indication: IMMUNE SYSTEM DISORDER
  5. OS-CAL [Concomitant]
     Indication: MINERAL SUPPLEMENTATION
  6. DEPAKOTE [Suspect]
     Indication: CONVULSION PROPHYLAXIS
     Dosage: 2 IN 1 DAYS, 750 MG DAILY DOSE
     Route: 048
     Dates: start: 20100918
  7. TENEX [Concomitant]
     Indication: ABNORMAL BEHAVIOUR
  8. XOPENEX [Concomitant]
     Indication: ASTHMA
  9. DEPAKOTE [Suspect]
     Indication: ABNORMAL BEHAVIOUR
  10. RAD STUDY DRUG [Concomitant]
     Indication: BRAIN NEOPLASM
  11. ADVAIR DISKUS 100/50 [Concomitant]
     Indication: ASTHMA
     Dosage: 45/21
     Route: 055
  12. SINGULAIR [Concomitant]
     Indication: ASTHMA
  13. MULTI-VITAMIN [Concomitant]
     Indication: MINERAL SUPPLEMENTATION

REACTIONS (3)
  - VOMITING [None]
  - DIARRHOEA [None]
  - MEDICATION RESIDUE [None]
